FAERS Safety Report 18402552 (Version 1)
Quarter: 2020Q4

REPORT INFORMATION
  Report Type: Report from Study
  Country: IT (occurrence: IT)
  Receive Date: 20201019
  Receipt Date: 20201019
  Transmission Date: 20210114
  Serious: Yes (Hospitalization)
  Sender: FDA-Public Use
  Company Number: IT-PURDUE-USA-2020-0171439

PATIENT
  Age: 70 Year
  Sex: Female

DRUGS (5)
  1. SOLDESAM [Concomitant]
     Active Substance: DEXAMETHASONE
     Dosage: UNK
  2. CARDICOR [Concomitant]
     Active Substance: BISOPROLOL
     Dosage: UNK
  3. LANSOX [Concomitant]
     Active Substance: LANSOPRAZOLE
     Dosage: UNK
  4. MS CONTIN [Suspect]
     Active Substance: MORPHINE SULFATE
     Indication: PAIN
     Dosage: 2 DF, DAILY [STRENGTH 100 MG]
     Route: 065
     Dates: start: 20200731, end: 20200802
  5. LYRICA [Suspect]
     Active Substance: PREGABALIN
     Indication: PAIN
     Dosage: UNK
     Route: 065
     Dates: start: 20200730, end: 20200802

REACTIONS (3)
  - Sopor [Unknown]
  - Asthenia [Unknown]
  - Malaise [Unknown]

NARRATIVE: CASE EVENT DATE: 20200803
